FAERS Safety Report 15716906 (Version 8)
Quarter: 2019Q2

REPORT INFORMATION
  Report Type: Spontaneous
  Country: CA (occurrence: CA)
  Receive Date: 20181213
  Receipt Date: 20190614
  Transmission Date: 20190711
  Serious: Yes (Other)
  Sender: FDA-Public Use
  Company Number: CA-CELLTRION INC.-2018CA022472

PATIENT

DRUGS (12)
  1. VITAMIN D [Concomitant]
     Active Substance: VITAMIN D NOS
     Dosage: UNK
  2. INFLECTRA [Suspect]
     Active Substance: INFLIXIMAB-DYYB
     Dosage: 5 MG/KG, WEEK 0, 2, 6 THEN EVERY 8 WEEKS
     Route: 041
     Dates: start: 20181009
  3. PREDNISONE. [Concomitant]
     Active Substance: PREDNISONE
     Dosage: UNK
     Route: 048
  4. INFLECTRA [Suspect]
     Active Substance: INFLIXIMAB-DYYB
     Dosage: 5 MG/KG, WEEK 0, 2, 6 THEN EVERY 8 WEEKS
     Route: 041
     Dates: start: 20180911
  5. INFLECTRA [Suspect]
     Active Substance: INFLIXIMAB-DYYB
     Dosage: 7.5 MG/KG, ADJUSTED TO VIAL EVERY 8 WEEKS
     Route: 041
     Dates: start: 20190112, end: 20190112
  6. VITAMIN B12 [Concomitant]
     Active Substance: CYANOCOBALAMIN
     Dosage: UNK
     Route: 065
  7. INFLECTRA [Suspect]
     Active Substance: INFLIXIMAB-DYYB
     Dosage: 7.5 MG/KG, ADJUSTED TO VIAL EVERY 8 WEEKS)
     Route: 041
     Dates: start: 20190322, end: 20190322
  8. INFLECTRA [Suspect]
     Active Substance: INFLIXIMAB-DYYB
     Dosage: 7.5 MG/KG, ADJUSTED TO VIAL EVERY 8 WEEKS
     Route: 041
     Dates: start: 20190125, end: 20190125
  9. CORTISONE [Concomitant]
     Active Substance: CORTISONE\HYDROCORTISONE
     Dosage: UNK, THRICE DAILY
     Route: 042
     Dates: start: 20180816
  10. INFLECTRA [Suspect]
     Active Substance: INFLIXIMAB-DYYB
     Indication: CROHN^S DISEASE
     Dosage: 5 MG/KG, WEEK 0, 2, 6 THEN EVERY 8 WEEKS
     Route: 041
     Dates: start: 20180831, end: 20181009
  11. SOLU-MEDROL [Concomitant]
     Active Substance: METHYLPREDNISOLONE SODIUM SUCCINATE
     Dosage: 20 MG, 3X/DAY
     Route: 042
     Dates: start: 201807, end: 2018
  12. SOLU-MEDROL [Concomitant]
     Active Substance: METHYLPREDNISOLONE SODIUM SUCCINATE
     Dosage: 20 MG, THRICE DAILY
     Route: 042
     Dates: start: 201807, end: 2018

REACTIONS (26)
  - Eating disorder [Unknown]
  - Headache [Recovering/Resolving]
  - Secretion discharge [Unknown]
  - Streptococcal infection [Unknown]
  - Nasopharyngitis [Unknown]
  - Arthralgia [Unknown]
  - Tongue discolouration [Unknown]
  - Nausea [Recovered/Resolved]
  - Weight decreased [Unknown]
  - Rhinorrhoea [Unknown]
  - Erythema [Recovered/Resolved]
  - Aphthous ulcer [Unknown]
  - Abscess [Unknown]
  - Pruritus [Recovered/Resolved]
  - Condition aggravated [Unknown]
  - Anal fissure [Unknown]
  - Dysphagia [Unknown]
  - Decreased appetite [Unknown]
  - Blood pressure fluctuation [Unknown]
  - Dizziness [Recovered/Resolved]
  - Fatigue [Unknown]
  - Lupus-like syndrome [Unknown]
  - Pyrexia [Recovered/Resolved]
  - Ageusia [Unknown]
  - Inappropriate schedule of product administration [Unknown]
  - Malaise [Recovered/Resolved]

NARRATIVE: CASE EVENT DATE: 20180831
